FAERS Safety Report 12670837 (Version 1)
Quarter: 2016Q3

REPORT INFORMATION
  Report Type: Spontaneous
  Country: US (occurrence: US)
  Receive Date: 20160822
  Receipt Date: 20160822
  Transmission Date: 20161109
  Serious: No
  Sender: FDA-Public Use
  Company Number: US-JAZZ-2016-US-006098

PATIENT
  Sex: Male

DRUGS (20)
  1. SUBOXONE [Concomitant]
     Active Substance: BUPRENORPHINE HYDROCHLORIDE\NALOXONE HYDROCHLORIDE
  2. PERCOCET [Concomitant]
     Active Substance: ACETAMINOPHEN\OXYCODONE HYDROCHLORIDE
  3. LIDODERM [Concomitant]
     Active Substance: LIDOCAINE
  4. MULTIVITAMIN WITH MINERALS [Concomitant]
     Active Substance: MINERALS\VITAMINS
  5. CRESTOR [Concomitant]
     Active Substance: ROSUVASTATIN CALCIUM
  6. LIDOCAINE. [Concomitant]
     Active Substance: LIDOCAINE
  7. VITAMIN E [Concomitant]
     Active Substance: .ALPHA.-TOCOPHEROL
  8. OXCARBAZEPINE. [Concomitant]
     Active Substance: OXCARBAZEPINE
  9. CYMBALTA [Concomitant]
     Active Substance: DULOXETINE HYDROCHLORIDE
  10. NUVIGIL [Concomitant]
     Active Substance: ARMODAFINIL
  11. VOLTAREN [Concomitant]
     Active Substance: DICLOFENAC SODIUM
  12. GABAPENTIN. [Concomitant]
     Active Substance: GABAPENTIN
  13. VITAMIN A [Concomitant]
     Active Substance: VITAMIN A
  14. XYREM [Suspect]
     Active Substance: SODIUM OXYBATE
     Indication: NARCOLEPSY
     Dosage: 1.5 G, BID
     Route: 048
     Dates: start: 201212, end: 201212
  15. XYREM [Suspect]
     Active Substance: SODIUM OXYBATE
     Indication: CATAPLEXY
     Dosage: DOSE ADJUSTMENT
     Route: 048
  16. ROBAXIN [Concomitant]
     Active Substance: METHOCARBAMOL
  17. GLUCOSAMINE + CHONDROITIN WITH MSM [Concomitant]
  18. TOPAMAX [Concomitant]
     Active Substance: TOPIRAMATE
  19. XYREM [Suspect]
     Active Substance: SODIUM OXYBATE
     Dosage: 3 G, BID
     Route: 048
     Dates: start: 201412
  20. AMITRIPTYLINE HCL [Concomitant]
     Active Substance: AMITRIPTYLINE

REACTIONS (3)
  - Insomnia [Unknown]
  - Expired product administered [Unknown]
  - Treatment noncompliance [Unknown]
